FAERS Safety Report 11267418 (Version 1)
Quarter: 2015Q3

REPORT INFORMATION
  Report Type: Spontaneous
  Country: US (occurrence: US)
  Receive Date: 20150713
  Receipt Date: 20150713
  Transmission Date: 20151125
  Serious: No
  Sender: FDA-Public Use
  Company Number: US-TAKEDA-2013MPI000279

PATIENT
  Age: 71 Year
  Sex: Female
  Weight: 78 kg

DRUGS (5)
  1. VELCADE [Suspect]
     Active Substance: BORTEZOMIB
     Dosage: UNK
     Route: 042
     Dates: start: 20130904
  2. DEXAMETHASON                       /00016001/ [Suspect]
     Active Substance: DEXAMETHASONE
     Indication: PLASMA CELL MYELOMA
     Dosage: 40 MG, ON DSYS 1, 8, 15 AND 22 FOLLOWED BY ONE WEEK OFF
     Route: 048
     Dates: start: 20130701
  3. VELCADE [Suspect]
     Active Substance: BORTEZOMIB
     Indication: PLASMA CELL MYELOMA
     Dosage: 1.3 MG/M2, ON DAYS 1, 8, 15 AND 22 FOLLOWED BY ONE WEEK OFF
     Route: 058
     Dates: start: 20130701
  4. CYTOXAN [Suspect]
     Active Substance: CYCLOPHOSPHAMIDE
     Indication: PLASMA CELL MYELOMA
     Dosage: 300 MG/M2, ON DSYS 1, 8, 15 AND 22 FOLLOWED BY ONE WEEK OFF
     Route: 048
     Dates: start: 20130701
  5. VELCADE [Suspect]
     Active Substance: BORTEZOMIB
     Dosage: UNK
     Route: 040

REACTIONS (2)
  - Injection site reaction [Unknown]
  - Infusion site phlebitis [Unknown]
